FAERS Safety Report 8505896-X (Version None)
Quarter: 2012Q3

REPORT INFORMATION
  Report Type: 
  Country: None (occurrence: None)
  Receive Date: 20120712
  Receipt Date: 20120708
  Transmission Date: 20120928
  Serious: Yes (Hospitalization)
  Sender: FDA-Public Use
  Company Number: IT-SANOFI-AVENTIS-2010SA039463

PATIENT
  Age: 64 Year
  Sex: Male

DRUGS (2)
  1. METHOTREXATE [Concomitant]
     Indication: RHEUMATOID ARTHRITIS
     Route: 065
  2. LEFLUNOMIDE [Suspect]
     Route: 065
     Dates: start: 20090601, end: 20090701

REACTIONS (10)
  - FATIGUE [None]
  - SERUM FERRITIN INCREASED [None]
  - BLOOD TRIGLYCERIDES INCREASED [None]
  - BLOOD LACTATE DEHYDROGENASE INCREASED [None]
  - HISTIOCYTOSIS HAEMATOPHAGIC [None]
  - C-REACTIVE PROTEIN INCREASED [None]
  - ALANINE AMINOTRANSFERASE INCREASED [None]
  - ASPARTATE AMINOTRANSFERASE INCREASED [None]
  - PYREXIA [None]
  - PLATELET COUNT INCREASED [None]
